FAERS Safety Report 19769866 (Version 1)
Quarter: 2021Q3

REPORT INFORMATION
  Report Type: Not Available
  Country: None (occurrence: None)
  Receive Date: 20210831
  Receipt Date: 20210831
  Transmission Date: 20211014
  Serious: No
  Sender: FDA-Public Use
  Company Number: US-AKORN-170763

PATIENT
  Sex: Female

DRUGS (1)
  1. DORZOLAMIDE HCL OPHTHALMIC SOLUTION 2% [Suspect]
     Active Substance: DORZOLAMIDE HYDROCHLORIDE

REACTIONS (1)
  - Muscle spasms [Recovered/Resolved]
